FAERS Safety Report 6748030-9 (Version None)
Quarter: 2010Q2

REPORT INFORMATION
  Report Type: 
  Country: None (occurrence: None)
  Receive Date: 20100531
  Receipt Date: 20100517
  Transmission Date: 20101027
  Serious: Yes (Other)
  Sender: FDA-Public Use
  Company Number: GB-MYLANLABS-2010S1008692

PATIENT
  Age: 32 Year
  Sex: Female

DRUGS (6)
  1. METOPROLOL TARTRATE [Suspect]
     Indication: DRUG USE FOR UNKNOWN INDICATION
  2. FUROSEMIDE [Suspect]
     Indication: DRUG USE FOR UNKNOWN INDICATION
     Route: 042
  3. ASPIRIN [Suspect]
     Indication: DRUG USE FOR UNKNOWN INDICATION
  4. DIGOXIN [Suspect]
     Indication: TACHYCARDIA
  5. ENOXAPARIN SODIUM [Suspect]
     Indication: DRUG USE FOR UNKNOWN INDICATION
  6. SALBUTAMOL [Suspect]
     Indication: WHEEZING

REACTIONS (7)
  - DRUG EXPOSURE DURING PREGNANCY [None]
  - HELLP SYNDROME [None]
  - INTRA-UTERINE DEATH [None]
  - MITRAL VALVE STENOSIS [None]
  - PRE-ECLAMPSIA [None]
  - PULMONARY HYPERTENSION [None]
  - PULMONARY OEDEMA [None]
